FAERS Safety Report 15307181 (Version 2)
Quarter: 2020Q4

REPORT INFORMATION
  Report Type: Report from Study
  Country: US (occurrence: US)
  Receive Date: 20180822
  Receipt Date: 20201104
  Transmission Date: 20210113
  Serious: Yes (Hospitalization)
  Sender: FDA-Public Use
  Company Number: US-TEVA-2018-US-946864

PATIENT
  Age: 59 Year
  Sex: Female

DRUGS (15)
  1. COPAXONE [Suspect]
     Active Substance: GLATIRAMER ACETATE
     Indication: MULTIPLE SCLEROSIS
     Dosage: PREFILLED SYRINGE
     Route: 058
     Dates: start: 20180130
  2. VITAMIN C [Concomitant]
     Active Substance: ASCORBIC ACID
     Route: 065
  3. CAL MAG ZINC [Concomitant]
     Route: 065
  4. ACID REDUCER CHW COMPLETE [Concomitant]
     Route: 065
  5. STOOL SOFTENER (DOCUSATE) [Concomitant]
     Active Substance: DOCUSATE
     Route: 065
  6. POTASSIUM [Concomitant]
     Active Substance: POTASSIUM
     Route: 065
  7. BLACK COHOSH [Concomitant]
     Active Substance: BLACK COHOSH
     Route: 065
  8. DIPHENHYDRAM [Concomitant]
     Route: 065
  9. TYLENOL [Concomitant]
     Active Substance: ACETAMINOPHEN
     Route: 065
  10. SUPER B COMPLETE [Concomitant]
     Route: 065
  11. VITAMIN D3 [Concomitant]
     Active Substance: CHOLECALCIFEROL
     Route: 065
  12. GLUCOSAMINE [Concomitant]
     Active Substance: GLUCOSAMINE
     Route: 065
  13. ALENDRONATE [Concomitant]
     Active Substance: ALENDRONATE SODIUM
     Route: 065
  14. GUMMY BITES [Concomitant]
     Route: 065
  15. IBANDRONATE [Concomitant]
     Active Substance: IBANDRONATE SODIUM
     Route: 065

REACTIONS (3)
  - Hysterectomy [Not Recovered/Not Resolved]
  - Fatigue [Not Recovered/Not Resolved]
  - Condition aggravated [Not Recovered/Not Resolved]

NARRATIVE: CASE EVENT DATE: 2018
